FAERS Safety Report 18571676 (Version 1)
Quarter: 2020Q4

REPORT INFORMATION
  Report Type: Spontaneous
  Country: GB (occurrence: GB)
  Receive Date: 20201202
  Receipt Date: 20201202
  Transmission Date: 20210114
  Serious: Yes (Death)
  Sender: FDA-Public Use
  Company Number: GB-MYLANLABS-2020M1097287

PATIENT
  Age: 18 Year
  Sex: Male

DRUGS (1)
  1. OLANZAPINE. [Suspect]
     Active Substance: OLANZAPINE
     Indication: SEIZURE
     Dosage: UNK UNK, UNKNOWN
     Route: 065

REACTIONS (4)
  - Off label use [Unknown]
  - Neuroleptic malignant syndrome [Fatal]
  - Pneumonia [Fatal]
  - Brain injury [Fatal]
